FAERS Safety Report 7149362-5 (Version None)
Quarter: 2010Q4

REPORT INFORMATION
  Report Type: 
  Country: None (occurrence: None)
  Receive Date: 20101209
  Receipt Date: 20100821
  Transmission Date: 20110411
  Serious: No
  Sender: FDA-Public Use
  Company Number: US-KINGPHARMUSA00001-K201001117

PATIENT
  Age: 53 Year
  Sex: Male
  Weight: 86.168 kg

DRUGS (5)
  1. EMBEDA [Suspect]
     Indication: BACK PAIN
     Dosage: 20 MG, BID
     Route: 048
     Dates: start: 20100801, end: 20100801
  2. EMBEDA [Suspect]
     Indication: BACK INJURY
  3. ATIVAN [Concomitant]
     Dosage: 1 MG, QID
     Route: 048
  4. SIMVASTATIN [Concomitant]
     Indication: BLOOD CHOLESTEROL INCREASED
     Dosage: UNK
     Route: 048
  5. ANTIHYPERTENSIVES [Concomitant]
     Indication: HYPERTENSION
     Dosage: UNK
     Route: 048

REACTIONS (2)
  - CHEST PAIN [None]
  - DRUG WITHDRAWAL SYNDROME [None]
